FAERS Safety Report 6938672-X (Version None)
Quarter: 2010Q3

REPORT INFORMATION
  Report Type: 
  Country: None (occurrence: None)
  Receive Date: 20100824
  Receipt Date: 20100810
  Transmission Date: 20110219
  Serious: Yes (Other)
  Sender: FDA-Public Use
  Company Number: PHHY2010US53734

PATIENT
  Sex: Female

DRUGS (8)
  1. DIOVAN [Suspect]
     Dosage: 320 MG
  2. ASPIRIN [Suspect]
  3. ACETAMINOPHEN [Suspect]
  4. EPINEPHRINE [Suspect]
  5. DYE [Suspect]
  6. THYROID MEDICATION [Concomitant]
     Dosage: 65 MG
  7. LANTUS [Concomitant]
  8. HUMALOG [Concomitant]

REACTIONS (6)
  - DIARRHOEA [None]
  - DRUG HYPERSENSITIVITY [None]
  - HEADACHE [None]
  - MUSCULOSKELETAL STIFFNESS [None]
  - TYPE 1 DIABETES MELLITUS [None]
  - WRONG TECHNIQUE IN DRUG USAGE PROCESS [None]
